FAERS Safety Report 7083180-1 (Version None)
Quarter: 2010Q4

REPORT INFORMATION
  Report Type: 
  Country: None (occurrence: None)
  Receive Date: 20101027
  Receipt Date: 20101019
  Transmission Date: 20110411
  Serious: Yes (Hospitalization)
  Sender: FDA-Public Use
  Company Number: 2010MA003810

PATIENT
  Age: 41 Year
  Sex: Male

DRUGS (7)
  1. CARBAMAZEPINE [Suspect]
     Dosage: 400 MG; BID
  2. AMISULPRIDE (AMISULPRIDE) [Suspect]
     Dosage: 600 MG; BID
  3. DEPAKOTE [Concomitant]
  4. RISPERIDONE [Concomitant]
  5. CLOPIXOL [Concomitant]
  6. TRIHEXYPHENIDYL HCL [Concomitant]
  7. CLOZAPINE [Concomitant]

REACTIONS (14)
  - ABNORMAL BEHAVIOUR [None]
  - AGGRESSION [None]
  - APATHY [None]
  - BLOOD CHOLESTEROL INCREASED [None]
  - DECREASED INTEREST [None]
  - FLAT AFFECT [None]
  - HALLUCINATION, AUDITORY [None]
  - IMPAIRED SELF-CARE [None]
  - LETHARGY [None]
  - PERSECUTORY DELUSION [None]
  - PHYSICAL ASSAULT [None]
  - PROTRUSION TONGUE [None]
  - SOMNOLENCE [None]
  - THINKING ABNORMAL [None]
